FAERS Safety Report 23941276 (Version 1)
Quarter: 2024Q2

REPORT INFORMATION
  Report Type: Spontaneous
  Country: FR (occurrence: FR)
  Receive Date: 20240605
  Receipt Date: 20240605
  Transmission Date: 20240715
  Serious: Yes (Disabling, Other)
  Sender: FDA-Public Use
  Company Number: FR-MLMSERVICE-20240516-PI065271-00108-1

PATIENT
  Age: 25 Year
  Sex: Male
  Weight: 78 kg

DRUGS (3)
  1. CLOZAPINE [Suspect]
     Active Substance: CLOZAPINE
     Indication: Schizophrenia
     Dosage: 150 MILLIGRAM (REDUCTION IN CLOZAPINE DOSE)
     Route: 065
     Dates: start: 2022, end: 2022
  2. CLOZAPINE [Suspect]
     Active Substance: CLOZAPINE
     Dosage: 300 MILLIGRAM
     Route: 065
     Dates: start: 202203, end: 2022
  3. CLOZAPINE [Suspect]
     Active Substance: CLOZAPINE
     Dosage: 150 MILLIGRAM, ONCE A DAY
     Route: 065
     Dates: start: 2022, end: 202208

REACTIONS (2)
  - Type I hypersensitivity [Recovered/Resolved]
  - Urticaria cholinergic [Recovered/Resolved]

NARRATIVE: CASE EVENT DATE: 20220701
